FAERS Safety Report 16641253 (Version 3)
Quarter: 2019Q3

REPORT INFORMATION
  Report Type: Spontaneous
  Country: FR (occurrence: FR)
  Receive Date: 20190729
  Receipt Date: 20190906
  Transmission Date: 20191004
  Serious: Yes (Hospitalization, Other)
  Sender: FDA-Public Use
  Company Number: FR-AUROBINDO-AUR-APL-2019-043137

PATIENT

DRUGS (30)
  1. TOPALGIC [TRAMADOL HYDROCHLORIDE] [Suspect]
     Active Substance: TRAMADOL HYDROCHLORIDE
     Indication: PAIN
     Dosage: 200 MILLIGRAM, ONCE A DAY
     Route: 042
     Dates: start: 20190515
  2. VITAMIN K [Suspect]
     Active Substance: PHYTONADIONE
     Indication: PROTHROMBIN TIME RATIO DECREASED
     Dosage: 20 MILLIGRAM, ONCE A DAY
     Route: 042
     Dates: start: 20190604
  3. KONAKION MM [Suspect]
     Active Substance: PHYTONADIONE
     Indication: PROTHROMBIN TIME RATIO DECREASED
     Dosage: 20 MILLIGRAM, ONCE A DAY
     Dates: start: 20190604, end: 20190609
  4. PIPERACILLIN AND TAZOBACTAM [Suspect]
     Active Substance: PIPERACILLIN SODIUM\TAZOBACTAM SODIUM
     Indication: SEPSIS
     Dosage: 12 GRAM, ONCE A DAY
     Route: 042
     Dates: start: 20190406
  5. NEFOPAM MYLAN [Suspect]
     Active Substance: NEFOPAM
     Dosage: 20 MILLIGRAM
     Route: 065
     Dates: start: 20190515
  6. COLCHICINE OPOCALCIUM [Suspect]
     Active Substance: COLCHICINE
     Indication: GOUT
     Dosage: 2 MILLIGRAM, ONCE A DAY
     Route: 048
     Dates: start: 20190615
  7. OROZAMUDOL [Suspect]
     Active Substance: TRAMADOL
     Indication: PAIN
     Dosage: 50 MILLIGRAM
     Route: 048
     Dates: start: 20190520
  8. PIPERACILLIN AND TAZOBACTAM [Suspect]
     Active Substance: PIPERACILLIN SODIUM\TAZOBACTAM SODIUM
     Dosage: 12 GRAM, ONCE A DAY
     Route: 042
     Dates: start: 20190604
  9. DOLIPRANE [Concomitant]
     Active Substance: ACETAMINOPHEN
     Indication: PAIN
     Dosage: 1 GRAM
     Route: 048
  10. OCTREOTIDE. [Suspect]
     Active Substance: OCTREOTIDE
     Indication: GASTROINTESTINAL HAEMORRHAGE
     Dosage: 600 MICROGRAM, ONCE A DAY
     Route: 042
     Dates: start: 20190605
  11. PANTOPRAZOLE MYLAN [Suspect]
     Active Substance: PANTOPRAZOLE SODIUM
     Indication: PROPHYLAXIS AGAINST GASTROINTESTINAL ULCER
     Dosage: 20 MG LE MATIN
     Route: 048
     Dates: start: 20190505
  12. LOVENOX [Suspect]
     Active Substance: ENOXAPARIN SODIUM
     Indication: THROMBOSIS PROPHYLAXIS
     Dosage: 4000 INTERNATIONAL UNIT, ONCE A DAY
     Route: 058
     Dates: start: 20190614
  13. AMIKACINE [Suspect]
     Active Substance: AMIKACIN
     Indication: SEPSIS
     Dosage: 1500 MILLIGRAM, ONCE A DAY
     Route: 042
     Dates: start: 20190604
  14. POLARAMINE [Suspect]
     Active Substance: DEXCHLORPHENIRAMINE MALEATE
     Indication: ALLERGY PROPHYLAXIS
     Dosage: 5 MILLIGRAM, ONCE A DAY
     Route: 042
     Dates: start: 20190606
  15. METHYLPREDNISOLONE MYLAN [Suspect]
     Active Substance: METHYLPREDNISOLONE
     Indication: ALLERGY PROPHYLAXIS
     Dosage: 60 MILLIGRAM, ONCE A DAY
     Route: 042
     Dates: start: 20190606
  16. NEFOPAM MYLAN [Suspect]
     Active Substance: NEFOPAM
     Indication: PAIN
     Dosage: 20 MILLIGRAM
     Route: 042
     Dates: start: 20190505
  17. DAPTOMYCINE ACCORD [Suspect]
     Active Substance: DAPTOMYCIN
     Indication: SEPTIC SHOCK
     Dosage: 850 MILLIGRAM, ONCE A DAY
     Route: 042
     Dates: start: 20190701
  18. CETIRIZINE [Suspect]
     Active Substance: CETIRIZINE HYDROCHLORIDE
     Indication: ALLERGY PROPHYLAXIS
     Dosage: 10 MILLIGRAM, ONCE A DAY
     Route: 048
     Dates: start: 20190606
  19. CETIRIZINE [Suspect]
     Active Substance: CETIRIZINE HYDROCHLORIDE
     Indication: ALLERGY PROPHYLAXIS
     Dosage: ONE, ONCE A DAY
     Route: 065
     Dates: start: 20190606
  20. MAG 2 [Suspect]
     Active Substance: MAGNESIUM
     Indication: MAGNESIUM DEFICIENCY
     Dosage: 2 DOSAGE FORM, ONCE A DAY
     Route: 048
     Dates: start: 20190618
  21. KARDEGIC [Concomitant]
     Active Substance: ASPIRIN DL-LYSINE
     Indication: ISCHAEMIC CARDIOMYOPATHY
     Dosage: 0-1-0
     Route: 048
  22. PIPERACILLIN AND TAZOBACTAM [Suspect]
     Active Substance: PIPERACILLIN SODIUM\TAZOBACTAM SODIUM
     Dosage: 12 MILLIGRAM, ONCE A DAY
     Route: 042
     Dates: start: 20190614
  23. ACTISKENAN [Suspect]
     Active Substance: MORPHINE SULFATE
     Indication: PAIN
     Dosage: 15 MILLIGRAM, ONCE A DAY
     Route: 048
     Dates: start: 20190629
  24. TOPALGIC [TRAMADOL HYDROCHLORIDE] [Suspect]
     Active Substance: TRAMADOL HYDROCHLORIDE
     Dosage: 200 MILLIGRAM, ONCE A DAY
     Route: 048
     Dates: start: 20190515
  25. VANCOMYCINE SANDOZ [Suspect]
     Active Substance: VANCOMYCIN
     Indication: SEPSIS
     Dosage: 3080 MILLIGRAM, ONCE A DAY
     Route: 042
     Dates: start: 20190605
  26. INNOHEP [Suspect]
     Active Substance: TINZAPARIN SODIUM
     Indication: THROMBOSIS
     Dosage: 17000 INTERNATIONAL UNIT, ONCE A DAY
     Route: 058
     Dates: start: 20190505
  27. REMIFENTANIL MYLAN [Suspect]
     Active Substance: REMIFENTANIL
     Indication: ANAESTHESIA
     Dosage: 796 MICROGRAM, ONCE A DAY
     Route: 042
     Dates: start: 20190515
  28. PROPOFOL. [Suspect]
     Active Substance: PROPOFOL
     Indication: ANAESTHESIA
     Dosage: 1088 MILLIGRAM, ONCE A DAY
     Route: 042
     Dates: start: 20190515
  29. VANCOMYCINE SANDOZ [Suspect]
     Active Substance: VANCOMYCIN
     Indication: PAIN
  30. CEFTRIAXONE. [Suspect]
     Active Substance: CEFTRIAXONE
     Indication: SEPSIS
     Dosage: 1 GRAM, ONCE A DAY
     Route: 042
     Dates: start: 20190607

REACTIONS (1)
  - Drug reaction with eosinophilia and systemic symptoms [Not Recovered/Not Resolved]

NARRATIVE: CASE EVENT DATE: 20190701
